FAERS Safety Report 21208636 (Version 2)
Quarter: 2022Q3

REPORT INFORMATION
  Report Type: Spontaneous
  Country: US (occurrence: US)
  Receive Date: 20220812
  Receipt Date: 20220901
  Transmission Date: 20221026
  Serious: Yes (Other)
  Sender: FDA-Public Use
  Company Number: US-TEVA-2022-US-2064507

PATIENT
  Age: 60 Year
  Sex: Female

DRUGS (8)
  1. CARBOPLATIN [Suspect]
     Active Substance: CARBOPLATIN
     Indication: Ovarian cancer stage III
     Route: 065
  2. PACLITAXEL [Suspect]
     Active Substance: PACLITAXEL
     Indication: Ovarian cancer stage III
     Route: 065
  3. AZITHROMYCIN [Suspect]
     Active Substance: AZITHROMYCIN
     Indication: Mycobacterium avium complex infection
     Route: 065
  4. ETHAMBUTOL [Suspect]
     Active Substance: ETHAMBUTOL HYDROCHLORIDE
     Indication: Mycobacterium avium complex infection
     Route: 065
  5. RIFABUTIN [Suspect]
     Active Substance: RIFABUTIN
     Indication: Mycobacterium avium complex infection
     Route: 065
  6. PEGFILGRASTIM [Suspect]
     Active Substance: PEGFILGRASTIM
     Indication: Ovarian cancer stage III
     Route: 065
  7. PRIVIGEN [Suspect]
     Active Substance: HUMAN IMMUNOGLOBULIN G
     Indication: Ovarian cancer stage III
     Route: 042
  8. BEVACIZUMAB [Suspect]
     Active Substance: BEVACIZUMAB
     Indication: Ovarian cancer stage III
     Route: 065

REACTIONS (20)
  - Mycobacterium avium complex infection [Unknown]
  - Hyperbilirubinaemia [Unknown]
  - Liver function test increased [Unknown]
  - Urinary retention [Unknown]
  - Urinary tract infection [Unknown]
  - Klebsiella infection [Unknown]
  - Urinary incontinence [Unknown]
  - Fatigue [Unknown]
  - Neuropathy peripheral [Unknown]
  - Headache [Unknown]
  - Dyspnoea exertional [Unknown]
  - Anxiety [Unknown]
  - Abdominal pain [Unknown]
  - Bone pain [Unknown]
  - Abdominal discomfort [Unknown]
  - Fatigue [Unknown]
  - Pyrexia [Unknown]
  - Myalgia [Unknown]
  - Oral herpes [Unknown]
  - Mycobacterium avium complex infection [Unknown]
